FAERS Safety Report 8294895 (Version 2)
Quarter: 2012Q4

REPORT INFORMATION
  Report Type: Report from Study
  Country: KR (occurrence: KR)
  Receive Date: 20111216
  Receipt Date: 20120906
  Transmission Date: 20130627
  Serious: Yes (Death, Hospitalization)
  Sender: FDA-Public Use
  Company Number: KR-BRISTOL-MYERS SQUIBB COMPANY-15851736

PATIENT
  Age: 68 Year
  Sex: Male

DRUGS (1)
  1. ENTECAVIR [Suspect]
     Indication: HEPATITIS B
     Dosage: 26Feb08-12Jan10(0.5mg),26Feb08-12Jan10(100mg),13Jan10-14Nov11(0.5mg)
     Route: 048
     Dates: start: 20100113, end: 20111114

REACTIONS (5)
  - Subdural haemorrhage [Fatal]
  - Myocardial infarction [Fatal]
  - Hydrocephalus [Recovered/Resolved]
  - Optic neuropathy [Recovered/Resolved]
  - Subarachnoid haemorrhage [Not Recovered/Not Resolved]
